FAERS Safety Report 6612333-9 (Version None)
Quarter: 2010Q1

REPORT INFORMATION
  Report Type: 
  Country: None (occurrence: None)
  Receive Date: 20100303
  Receipt Date: 20100219
  Transmission Date: 20100710
  Serious: Yes (Hospitalization, Other)
  Sender: FDA-Public Use
  Company Number: JP-PFIZER INC-2010023739

PATIENT
  Age: 37 Year
  Sex: Male

DRUGS (7)
  1. RIFABUTIN [Suspect]
     Indication: TUBERCULOSIS
     Dosage: 5-20 MG, DAILY
     Route: 048
     Dates: start: 20080530, end: 20080611
  2. NORVIR [Suspect]
     Indication: HIV INFECTION
     Dosage: 100 MG\DAY
     Route: 048
     Dates: start: 20080618
  3. REYATAZ [Suspect]
     Indication: HIV INFECTION
     Dosage: 300 MG, DAY
     Route: 048
     Dates: start: 20080618
  4. TRUVADA [Suspect]
     Indication: HIV INFECTION
     Dosage: UNK
     Route: 048
     Dates: start: 20080618, end: 20081130
  5. ZITHROMAX [Concomitant]
     Dosage: UNK
     Route: 048
     Dates: start: 20080314, end: 20090130
  6. CRAVIT [Concomitant]
     Dosage: UNK
     Route: 048
     Dates: start: 20080322, end: 20090130
  7. KANAMYCIN [Concomitant]
     Dosage: UNK
     Route: 048
     Dates: start: 20080423, end: 20081006

REACTIONS (3)
  - CONDITION AGGRAVATED [None]
  - IMMUNE RECONSTITUTION SYNDROME [None]
  - TUBERCULOSIS [None]
